FAERS Safety Report 26209208 (Version 1)
Quarter: 2025Q4

REPORT INFORMATION
  Report Type: Spontaneous
  Country: US (occurrence: None)
  Receive Date: 20251226
  Receipt Date: 20251226
  Transmission Date: 20260118
  Serious: Yes (Hospitalization)
  Sender: FDA-CTU
  Company Number: None

PATIENT
  Age: 91 Year
  Sex: Female

DRUGS (2)
  1. ENTECAVIR [Suspect]
     Active Substance: ENTECAVIR
     Indication: Chronic hepatitis B
     Dosage: OTHER FREQUENCY : EVERY 3RD DAY;
     Route: 048
     Dates: start: 20250820
  2. BARACLUDE [Concomitant]
     Active Substance: ENTECAVIR

REACTIONS (1)
  - Pneumonia [None]

NARRATIVE: CASE EVENT DATE: 20251206
